FAERS Safety Report 22299193 (Version 5)
Quarter: 2024Q1

REPORT INFORMATION
  Report Type: Spontaneous
  Country: US (occurrence: US)
  Receive Date: 20230509
  Receipt Date: 20240307
  Transmission Date: 20240410
  Serious: No
  Sender: FDA-Public Use
  Company Number: US-BRISTOL-MYERS SQUIBB COMPANY-2023-065224

PATIENT
  Age: 73 Year
  Sex: Male

DRUGS (10)
  1. REVLIMID [Suspect]
     Active Substance: LENALIDOMIDE
     Indication: Plasma cell myeloma
     Dosage: TAKE 1 CAPSULE BY MOUTH DAILY FOR 14 DAYS ON, THEN 7 DAYS OFF
     Route: 048
     Dates: start: 20230414
  2. LIPOICA [Concomitant]
     Indication: Product used for unknown indication
  3. CALCIUM [CALCIUM CHLORIDE HEXAHYDRATE] [Concomitant]
     Indication: Product used for unknown indication
  4. CIALIS [Concomitant]
     Active Substance: TADALAFIL
     Indication: Product used for unknown indication
  5. BIFIDOBACTERIUM ANIMALIS LACTIS [Concomitant]
     Active Substance: BIFIDOBACTERIUM ANIMALIS LACTIS
     Indication: Product used for unknown indication
  6. ROSUVASTATIN [Concomitant]
     Active Substance: ROSUVASTATIN
     Indication: Product used for unknown indication
  7. TADALAFIL [Concomitant]
     Active Substance: TADALAFIL
     Indication: Product used for unknown indication
  8. TESTOSTERON [TESTOSTERONE] [Concomitant]
     Indication: Product used for unknown indication
  9. VITAMIN D NOS [Concomitant]
     Active Substance: VITAMIN D NOS
     Indication: Product used for unknown indication
     Dosage: 50000 UNIT
  10. COENZYM Q-10 [Concomitant]
     Indication: Product used for unknown indication

REACTIONS (8)
  - Red blood cell count decreased [Unknown]
  - White blood cell count decreased [Unknown]
  - Off label use [Unknown]
  - Platelet count decreased [Unknown]
  - Respiratory disorder [Unknown]
  - Product distribution issue [Unknown]
  - Therapy interrupted [Unknown]
  - Mood altered [Unknown]

NARRATIVE: CASE EVENT DATE: 20240201
